FAERS Safety Report 7558085-X (Version None)
Quarter: 2011Q2

REPORT INFORMATION
  Report Type: 
  Country: None (occurrence: None)
  Receive Date: 20110620
  Receipt Date: 20110609
  Transmission Date: 20111010
  Serious: Yes (Other)
  Sender: FDA-Public Use
  Company Number: JP-UCBSA-034543

PATIENT
  Sex: Female

DRUGS (6)
  1. XYZAL [Suspect]
     Indication: RHINITIS ALLERGIC
     Route: 048
     Dates: start: 20110329, end: 20110101
  2. CANDESARTAN CILEXETIL [Concomitant]
     Indication: HYPERTENSION
     Route: 048
     Dates: start: 20020311, end: 20040408
  3. DOXAZOSIN MESYLATE [Concomitant]
     Indication: HYPERTENSION
     Route: 048
     Dates: start: 20041028, end: 20041110
  4. DOXAZOSIN MESYLATE [Concomitant]
     Route: 048
     Dates: start: 20041111
  5. SUPPLEMENT [Concomitant]
     Dosage: SINCE 6 MONTHS AGO
  6. CANDESARTAN CILEXETIL [Concomitant]
     Route: 048
     Dates: start: 20040409

REACTIONS (1)
  - ELECTROCARDIOGRAM QT PROLONGED [None]
